FAERS Safety Report 16854414 (Version 1)
Quarter: 2019Q3

REPORT INFORMATION
  Report Type: Spontaneous
  Country: US (occurrence: US)
  Receive Date: 20190802
  Receipt Date: 20190802
  Transmission Date: 20191005
  Serious: No
  Sender: FDA-Public Use
  Company Number: None

PATIENT
  Age: 27 Year
  Sex: Male

DRUGS (11)
  1. NICOTINE. [Concomitant]
     Active Substance: NICOTINE
  2. ALLOPURINOL. [Concomitant]
     Active Substance: ALLOPURINOL
  3. ENOXAPRIN [Concomitant]
     Active Substance: ENOXAPARIN
  4. TRETINOIN. [Suspect]
     Active Substance: TRETINOIN
     Indication: LEUKAEMIA
     Route: 048
     Dates: start: 20190303, end: 20190304
  5. AZITHROMYCIN ANHYDROUS. [Concomitant]
     Active Substance: AZITHROMYCIN ANHYDROUS
  6. CALCIUM CARBONATE. [Concomitant]
     Active Substance: CALCIUM CARBONATE
  7. MULTIVITAMIN [Concomitant]
     Active Substance: VITAMINS
  8. ACETAMINOPHEN. [Concomitant]
     Active Substance: ACETAMINOPHEN
  9. CEFTRIAXONE. [Concomitant]
     Active Substance: CEFTRIAXONE
  10. ENOXAPARIN [Concomitant]
     Active Substance: ENOXAPARIN
  11. CEFEPIME [Concomitant]
     Active Substance: CEFEPIME HYDROCHLORIDE

REACTIONS (1)
  - Blood creatine phosphokinase increased [None]

NARRATIVE: CASE EVENT DATE: 20190303
